FAERS Safety Report 17145037 (Version 1)
Quarter: 2019Q4

REPORT INFORMATION
  Report Type: Spontaneous
  Country: US (occurrence: US)
  Receive Date: 20191211
  Receipt Date: 20191211
  Transmission Date: 20200122
  Serious: Yes (Other)
  Sender: FDA-Public Use
  Company Number: None

PATIENT
  Age: 42 Year
  Sex: Female
  Weight: 92.25 kg

DRUGS (1)
  1. DOTAREM [Suspect]
     Active Substance: GADOTERATE MEGLUMINE
     Indication: MAGNETIC RESONANCE IMAGING
     Route: 042
     Dates: start: 20191031, end: 20191031

REACTIONS (12)
  - Muscle twitching [None]
  - Aphasia [None]
  - Heart rate increased [None]
  - Hypoaesthesia [None]
  - Balance disorder [None]
  - Pallor [None]
  - Bone pain [None]
  - Anxiety [None]
  - Tremor [None]
  - Dysphonia [None]
  - Eye pain [None]
  - Fatigue [None]

NARRATIVE: CASE EVENT DATE: 20191101
